FAERS Safety Report 10685182 (Version 1)
Quarter: 2014Q4

REPORT INFORMATION
  Report Type: Spontaneous
  Country: US (occurrence: None)
  Receive Date: 20141230
  Receipt Date: 20141230
  Transmission Date: 20150529
  Serious: No
  Sender: FDA-Public Use
  Company Number: None

PATIENT
  Age: 65 Year
  Sex: Female

DRUGS (1)
  1. ENBREL [Suspect]
     Active Substance: ETANERCEPT
     Indication: PSORIASIS
     Dosage: 50MG  QW  SQ
     Route: 058
     Dates: start: 20131203, end: 20141124

REACTIONS (3)
  - Dental caries [None]
  - Urinary tract infection [None]
  - Fungal infection [None]

NARRATIVE: CASE EVENT DATE: 20141015
